FAERS Safety Report 23267016 (Version 1)
Quarter: 2023Q4

REPORT INFORMATION
  Report Type: Spontaneous
  Country: US (occurrence: US)
  Receive Date: 20231206
  Receipt Date: 20231206
  Transmission Date: 20240109
  Serious: No
  Sender: FDA-Public Use
  Company Number: US-ALKERMES INC.-ALK-2023-004498

PATIENT
  Age: 31 Year

DRUGS (2)
  1. ARISTADA [Suspect]
     Active Substance: ARIPIPRAZOLE LAUROXIL
     Indication: Schizoaffective disorder bipolar type
     Dosage: UNK MILLIGRAM
     Route: 030
  2. FANAPT [Concomitant]
     Active Substance: ILOPERIDONE
     Indication: Product used for unknown indication
     Dosage: UNK
     Route: 065

REACTIONS (3)
  - Product physical consistency issue [Unknown]
  - Off label use [Not Recovered/Not Resolved]
  - Injection site pain [Unknown]

NARRATIVE: CASE EVENT DATE: 20230707
